FAERS Safety Report 7799465-7 (Version None)
Quarter: 2011Q4

REPORT INFORMATION
  Report Type: 
  Country: None (occurrence: None)
  Receive Date: 20111006
  Receipt Date: 20110927
  Transmission Date: 20120403
  Serious: Yes (Other)
  Sender: FDA-Public Use
  Company Number: PHHY2011BE85921

PATIENT
  Age: 71 Year
  Sex: Female

DRUGS (2)
  1. AFINITOR [Suspect]
     Indication: PANCREATIC NEUROENDOCRINE TUMOUR
     Dosage: 10 MG
     Dates: start: 20110713, end: 20110921
  2. AFINITOR [Suspect]
     Dosage: 5 MG
     Dates: start: 20110922

REACTIONS (6)
  - DRUG INTOLERANCE [None]
  - MALAISE [None]
  - MICROCYTIC ANAEMIA [None]
  - FATIGUE [None]
  - PAIN IN EXTREMITY [None]
  - WEIGHT DECREASED [None]
